FAERS Safety Report 15724341 (Version 1)
Quarter: 2018Q4

REPORT INFORMATION
  Report Type: Spontaneous
  Country: DZ (occurrence: DZ)
  Receive Date: 20181214
  Receipt Date: 20181214
  Transmission Date: 20190205
  Serious: Yes (Other)
  Sender: FDA-Public Use
  Company Number: DZ-GLAXOSMITHKLINE-DZ2018GSK223226

PATIENT
  Sex: Male
  Weight: 10 kg

DRUGS (1)
  1. VENTOLINE [Suspect]
     Active Substance: ALBUTEROL
     Indication: BRONCHIAL OBSTRUCTION
     Dosage: UNK

REACTIONS (1)
  - Bronchial obstruction [Not Recovered/Not Resolved]
